FAERS Safety Report 15077299 (Version 5)
Quarter: 2019Q4

REPORT INFORMATION
  Report Type: Spontaneous
  Country: JP (occurrence: JP)
  Receive Date: 20180627
  Receipt Date: 20191118
  Transmission Date: 20200122
  Serious: No
  Sender: FDA-Public Use
  Company Number: JP-EISAI MEDICAL RESEARCH-EC-2018-041890

PATIENT
  Age: 75 Year
  Sex: Male
  Weight: 60 kg

DRUGS (3)
  1. LENVIMA [Suspect]
     Active Substance: LENVATINIB
     Route: 048
     Dates: start: 20180619, end: 2018
  2. LENVIMA [Suspect]
     Active Substance: LENVATINIB
     Dosage: DOSE AND FREQUENCY NOT PROVIDED
     Route: 048
     Dates: start: 2018, end: 20180827
  3. LENVIMA [Suspect]
     Active Substance: LENVATINIB
     Indication: HEPATOCELLULAR CARCINOMA
     Route: 048
     Dates: start: 20180411, end: 20180612

REACTIONS (5)
  - Chondrocalcinosis pyrophosphate [Recovered/Resolved]
  - Decreased appetite [Unknown]
  - Diarrhoea [Unknown]
  - Hypothyroidism [Unknown]
  - Hypertension [Unknown]

NARRATIVE: CASE EVENT DATE: 20180427
